FAERS Safety Report 19468141 (Version 4)
Quarter: 2021Q3

REPORT INFORMATION
  Report Type: Report from Study
  Country: US (occurrence: US)
  Receive Date: 20210628
  Receipt Date: 20210928
  Transmission Date: 20211014
  Serious: Yes (Hospitalization)
  Sender: FDA-Public Use
  Company Number: US-TAKEDA-2021TUS039106

PATIENT
  Age: 28 Year
  Sex: Male

DRUGS (16)
  1. TEDUGLUTIDE [Suspect]
     Active Substance: TEDUGLUTIDE
     Dosage: 3.7 MILLIGRAM, QD
     Route: 058
     Dates: start: 202104
  2. TEDUGLUTIDE [Suspect]
     Active Substance: TEDUGLUTIDE
     Indication: SHORT-BOWEL SYNDROME
     Dosage: 0.36 MILLILITER, QD
     Route: 058
     Dates: start: 20210409
  3. TEDUGLUTIDE [Suspect]
     Active Substance: TEDUGLUTIDE
     Dosage: 3.7 MILLIGRAM, QD
     Route: 058
     Dates: start: 20210525
  4. TEDUGLUTIDE [Suspect]
     Active Substance: TEDUGLUTIDE
     Dosage: 0.37 MILLILITER, QD
     Route: 065
     Dates: start: 202104
  5. TEDUGLUTIDE [Suspect]
     Active Substance: TEDUGLUTIDE
     Dosage: 3.7 MILLIGRAM, QD
     Route: 058
     Dates: start: 202104
  6. TEDUGLUTIDE [Suspect]
     Active Substance: TEDUGLUTIDE
     Dosage: 3.7 MILLIGRAM, QD
     Route: 058
     Dates: start: 20210525
  7. TEDUGLUTIDE [Suspect]
     Active Substance: TEDUGLUTIDE
     Indication: SHORT-BOWEL SYNDROME
     Dosage: 0.36 MILLILITER, QD
     Route: 058
     Dates: start: 20210409
  8. TEDUGLUTIDE [Suspect]
     Active Substance: TEDUGLUTIDE
     Indication: SHORT-BOWEL SYNDROME
     Dosage: 0.36 MILLILITER, QD
     Route: 058
     Dates: start: 20210409
  9. TEDUGLUTIDE [Suspect]
     Active Substance: TEDUGLUTIDE
     Indication: SHORT-BOWEL SYNDROME
     Dosage: 0.36 MILLILITER, QD
     Route: 058
     Dates: start: 20210409
  10. TEDUGLUTIDE [Suspect]
     Active Substance: TEDUGLUTIDE
     Dosage: 3.7 MILLIGRAM, QD
     Route: 058
     Dates: start: 202104
  11. TEDUGLUTIDE [Suspect]
     Active Substance: TEDUGLUTIDE
     Dosage: 0.37 MILLILITER, QD
     Route: 065
     Dates: start: 202104
  12. TEDUGLUTIDE [Suspect]
     Active Substance: TEDUGLUTIDE
     Dosage: 0.37 MILLILITER, QD
     Route: 065
     Dates: start: 202104
  13. TEDUGLUTIDE [Suspect]
     Active Substance: TEDUGLUTIDE
     Dosage: 3.7 MILLIGRAM, QD
     Route: 058
     Dates: start: 20210525
  14. TEDUGLUTIDE [Suspect]
     Active Substance: TEDUGLUTIDE
     Dosage: 3.7 MILLIGRAM, QD
     Route: 058
     Dates: start: 202104
  15. TEDUGLUTIDE [Suspect]
     Active Substance: TEDUGLUTIDE
     Dosage: 3.7 MILLIGRAM, QD
     Route: 058
     Dates: start: 20210525
  16. TEDUGLUTIDE [Suspect]
     Active Substance: TEDUGLUTIDE
     Dosage: 0.37 MILLILITER, QD
     Route: 065
     Dates: start: 202104

REACTIONS (7)
  - Hypertension [Unknown]
  - Hospitalisation [Unknown]
  - Product dose omission issue [Unknown]
  - Inappropriate schedule of product administration [Unknown]
  - Abdominal pain [Unknown]
  - Abdominal pain lower [Unknown]
  - Therapeutic product effect variable [Unknown]

NARRATIVE: CASE EVENT DATE: 202106
